FAERS Safety Report 9760334 (Version 1)
Quarter: 2013Q4

REPORT INFORMATION
  Report Type: Spontaneous
  Country: US (occurrence: US)
  Receive Date: 20131216
  Receipt Date: 20131216
  Transmission Date: 20140711
  Serious: No
  Sender: FDA-Public Use
  Company Number: US-GILEAD-2010-0029345

PATIENT
  Age: 52 Year
  Sex: Female

DRUGS (7)
  1. LETAIRIS [Suspect]
     Indication: PULMONARY ARTERIAL HYPERTENSION
     Route: 048
     Dates: start: 20080305
  2. MULTIVITAMIN [Concomitant]
  3. VITAMIN D [Concomitant]
  4. KLOR-CON [Concomitant]
  5. DOCUSATE SODIUM [Concomitant]
  6. PANTOPRAZOLE [Concomitant]
  7. LASIX [Concomitant]

REACTIONS (1)
  - Local swelling [Unknown]
